FAERS Safety Report 9834551 (Version 1)
Quarter: 2014Q1

REPORT INFORMATION
  Report Type: Spontaneous
  Country: US (occurrence: US)
  Receive Date: 20140122
  Receipt Date: 20140122
  Transmission Date: 20141002
  Serious: No
  Sender: FDA-Public Use
  Company Number: US-BAYER-2014-010936

PATIENT
  Age: 65 Year
  Sex: Male
  Weight: 127 kg

DRUGS (1)
  1. GADAVIST [Suspect]
     Dosage: 12, CC ONCE
     Dates: start: 20140117, end: 20140117

REACTIONS (2)
  - Increased upper airway secretion [Recovered/Resolved]
  - Nausea [Recovered/Resolved]
